FAERS Safety Report 14906095 (Version 1)
Quarter: 2018Q2

REPORT INFORMATION
  Report Type: Spontaneous
  Country: US (occurrence: US)
  Receive Date: 20180517
  Receipt Date: 20180517
  Transmission Date: 20180711
  Serious: No
  Sender: FDA-Public Use
  Company Number: US-SA-2018SA064322

PATIENT
  Age: 75 Year
  Sex: Female

DRUGS (1)
  1. LANTUS [Suspect]
     Active Substance: INSULIN GLARGINE
     Indication: TYPE 2 DIABETES MELLITUS
     Dosage: DOSE:32-35 UNITS
     Route: 058
     Dates: start: 2017

REACTIONS (3)
  - Stress [Unknown]
  - Glycosylated haemoglobin increased [Unknown]
  - Pain [Unknown]

NARRATIVE: CASE EVENT DATE: 2017
